FAERS Safety Report 6473188-9 (Version None)
Quarter: 2009Q4

REPORT INFORMATION
  Report Type: 
  Country: None (occurrence: None)
  Receive Date: 20091204
  Receipt Date: 20080710
  Transmission Date: 20100525
  Serious: Yes (Death, Hospitalization, Other)
  Sender: FDA-Public Use
  Company Number: CA-ELI_LILLY_AND_COMPANY-CA200804007439

PATIENT
  Sex: Female

DRUGS (11)
  1. FORTEO [Suspect]
     Indication: OSTEOPOROSIS
     Dosage: 20 UG, DAILY (1/D)
     Route: 058
     Dates: start: 20070412, end: 20080416
  2. TYLENOL W/ CODEINE NO. 3 [Concomitant]
     Dosage: UNK, 4/D
     Route: 048
  3. CRESTOR [Concomitant]
     Dosage: 5 MG, UNK
  4. ALDACTAZIDE [Concomitant]
     Dosage: 25 MG, DAILY (1/D)
     Route: 048
     Dates: end: 20080418
  5. LEVOTHYROXINE SODIUM [Concomitant]
     Indication: HYPOTHYROIDISM
     Dates: end: 20080101
  6. LEVOTHYROXINE SODIUM [Concomitant]
     Dosage: 100 UG, DAILY (1/D)
     Dates: start: 20080101
  7. CALCIUM                                 /N/A/ [Concomitant]
     Dates: end: 20080418
  8. NAPROSYN [Concomitant]
  9. VITAMIN B-12 [Concomitant]
  10. FOLIC ACID [Concomitant]
  11. OXAZEPAM [Concomitant]

REACTIONS (12)
  - BRONCHIAL CARCINOMA [None]
  - CAROTID ARTERY STENOSIS [None]
  - CHOLELITHIASIS [None]
  - GASTROINTESTINAL HAEMORRHAGE [None]
  - HYDRONEPHROSIS [None]
  - HYPERCALCAEMIA OF MALIGNANCY [None]
  - MYALGIA [None]
  - PAIN [None]
  - PLEURAL FIBROSIS [None]
  - TRACHEOBRONCHITIS [None]
  - URINARY RETENTION [None]
  - WHITE BLOOD CELL COUNT INCREASED [None]
